FAERS Safety Report 13148094 (Version 1)
Quarter: 2017Q1

REPORT INFORMATION
  Report Type: Spontaneous
  Country: US (occurrence: US)
  Receive Date: 20170125
  Receipt Date: 20170125
  Transmission Date: 20170428
  Serious: Yes (Other)
  Sender: FDA-Public Use
  Company Number: US-MYLANLABS-2016M1004375

PATIENT

DRUGS (1)
  1. KETAMINE HYDROCHLORIDE INJECTION USP [Suspect]
     Active Substance: KETAMINE HYDROCHLORIDE
     Dosage: 85 MG/KG, SLOWLY OVER 40 SEC

REACTIONS (1)
  - Apnoea [Unknown]
